FAERS Safety Report 10213695 (Version 2)
Quarter: 2014Q2

REPORT INFORMATION
  Report Type: Spontaneous
  Country: AT (occurrence: AT)
  Receive Date: 20140603
  Receipt Date: 20140620
  Transmission Date: 20141212
  Serious: Yes (Hospitalization)
  Sender: FDA-Public Use
  Company Number: AT-ASTRAZENECA-2014SE36274

PATIENT
  Age: 3565 Week
  Sex: Female
  Weight: 87 kg

DRUGS (27)
  1. BRILIQUE [Suspect]
     Indication: ACUTE MYOCARDIAL INFARCTION
     Route: 048
     Dates: start: 20140411
  2. BRILIQUE [Suspect]
     Indication: ACUTE CORONARY SYNDROME
     Route: 048
     Dates: start: 20140411
  3. BRILIQUE [Suspect]
     Indication: ACUTE MYOCARDIAL INFARCTION
     Route: 048
     Dates: start: 20140516
  4. BRILIQUE [Suspect]
     Indication: ACUTE CORONARY SYNDROME
     Route: 048
     Dates: start: 20140516
  5. SORTIS [Suspect]
     Indication: ACUTE CORONARY SYNDROME
     Route: 048
     Dates: start: 20140411
  6. ASA [Concomitant]
     Indication: ACUTE CORONARY SYNDROME
     Route: 048
     Dates: start: 20140411
  7. RAMIPRIL [Concomitant]
     Dates: start: 20140411
  8. LEXOTANIL [Concomitant]
     Dates: start: 20140411
  9. PANTOLOC [Concomitant]
     Dates: start: 20140411
  10. CONCOR [Concomitant]
     Indication: ACUTE CORONARY SYNDROME
     Dosage: 10/25 DAILY
     Dates: start: 20140411
  11. CONCOR [Concomitant]
     Indication: ACUTE CORONARY SYNDROME
     Dates: start: 20140516
  12. LASIX [Concomitant]
     Dates: start: 20140411
  13. LASIX [Concomitant]
     Route: 042
  14. LOVENOX [Concomitant]
     Dates: start: 20140411
  15. LOVENOX [Concomitant]
     Dates: start: 20140516
  16. LENDORM [Concomitant]
     Dates: start: 20140411
  17. NOVORAPID [Concomitant]
  18. VENDAL [Concomitant]
  19. CLAVAMOX [Concomitant]
     Route: 042
     Dates: start: 20140411
  20. PLAVIX [Concomitant]
     Dates: start: 20140516
  21. AQUAPHORIC [Concomitant]
     Dates: start: 20140516
  22. ZANTAC [Concomitant]
     Dates: start: 20140516
  23. AMLODIPIN [Concomitant]
     Dates: start: 20140528
  24. L-THYROXINE [Concomitant]
     Dates: start: 20140528
  25. DIAMOX [Concomitant]
     Dosage: HALF
     Dates: start: 20140528
  26. UNASYN [Concomitant]
     Dates: start: 20140528
  27. KALIORAL [Concomitant]

REACTIONS (3)
  - Rhabdomyolysis [Recovered/Resolved with Sequelae]
  - Hepatitis [Not Recovered/Not Resolved]
  - Renal failure acute [Not Recovered/Not Resolved]
